FAERS Safety Report 8186446 (Version 4)
Quarter: 2014Q4

REPORT INFORMATION
  Report Type: Spontaneous
  Country: US (occurrence: US)
  Receive Date: 20111018
  Receipt Date: 20141230
  Transmission Date: 20150529
  Serious: Yes (Hospitalization, Other)
  Sender: FDA-Public Use
  Company Number: US-GLAXOSMITHKLINE-A0846984A

PATIENT
  Age: 40 Year
  Sex: Female

DRUGS (2)
  1. NONE [Concomitant]
     Active Substance: UNSPECIFIED INGREDIENT
  2. ALLI [Suspect]
     Active Substance: ORLISTAT
     Indication: PRODUCT USED FOR UNKNOWN INDICATION
     Route: 048
     Dates: start: 200911, end: 200912

REACTIONS (28)
  - Acute hepatic failure [Unknown]
  - Cholestasis [Unknown]
  - Hepatic fibrosis [Unknown]
  - Liver disorder [Unknown]
  - Blood bilirubin increased [Unknown]
  - Asthenia [Unknown]
  - Aspartate aminotransferase increased [Unknown]
  - International normalised ratio increased [Unknown]
  - Liver transplant [Unknown]
  - Bilirubinuria [Unknown]
  - Jaundice [Unknown]
  - Leukocytosis [Unknown]
  - Diabetes mellitus [Unknown]
  - Dyspnoea [Unknown]
  - Hepato-lenticular degeneration [Unknown]
  - Coagulopathy [Unknown]
  - Hepatic necrosis [Unknown]
  - Ocular icterus [Unknown]
  - Fatigue [Unknown]
  - Alanine aminotransferase increased [Unknown]
  - Hepatic encephalopathy [Unknown]
  - Lethargy [Unknown]
  - Abdominal pain [Unknown]
  - Blood alkaline phosphatase increased [Unknown]
  - Hepatic failure [Unknown]
  - Influenza like illness [Unknown]
  - Abdominal discomfort [Unknown]
  - Decreased appetite [Unknown]

NARRATIVE: CASE EVENT DATE: 20091223
